FAERS Safety Report 8935079 (Version 3)
Quarter: 2013Q2

REPORT INFORMATION
  Report Type: Spontaneous
  Country: PT (occurrence: PT)
  Receive Date: 20121129
  Receipt Date: 20130513
  Transmission Date: 20140414
  Serious: Yes (Other)
  Sender: FDA-Public Use
  Company Number: PT-VERTEX PHARMACEUTICAL INC.-2012-025320

PATIENT
  Age: 50 Year
  Sex: Male

DRUGS (3)
  1. INCIVO [Suspect]
     Indication: HEPATITIS C
     Dosage: DOSAGE FORM: TABLET
     Dates: start: 201209, end: 20121220
  2. RIBAVIRIN [Suspect]
     Indication: HEPATITIS C
     Dosage: DOSAGE FORM: UNSPECIFIED
     Route: 065
     Dates: start: 201209
  3. PEGINTERFERON ALFA-2B [Concomitant]
     Indication: HEPATITIS C
     Dosage: UNK
     Dates: start: 201209

REACTIONS (7)
  - Rash maculo-papular [Unknown]
  - Anaemia [Unknown]
  - Headache [Unknown]
  - Weight decreased [Unknown]
  - Anxiety [Unknown]
  - Off label use [Unknown]
  - Anal pruritus [Unknown]
